FAERS Safety Report 23932647 (Version 1)
Quarter: 2024Q2

REPORT INFORMATION
  Report Type: Spontaneous
  Country: US (occurrence: None)
  Receive Date: 20240601
  Receipt Date: 20240601
  Transmission Date: 20240716
  Serious: Yes (Life-Threatening, Hospitalization, Disabling)
  Sender: FDA-Public Use
  Company Number: None

PATIENT
  Age: 31 Year
  Sex: Female
  Weight: 63 kg

DRUGS (4)
  1. CYANOCOBALAMIN\SEMAGLUTIDE [Suspect]
     Active Substance: CYANOCOBALAMIN\SEMAGLUTIDE
     Indication: Polycystic ovaries
     Dosage: OTHER QUANTITY : 0.05 INJECTION(S)?OTHER FREQUENCY : ONCE A WEEK?OTHER ROUTE : INJECTED INTO SKIN?
     Route: 050
     Dates: start: 20240525, end: 20240525
  2. NARDIL [Concomitant]
  3. Viamin D [Concomitant]
  4. multivitamin [Concomitant]

REACTIONS (13)
  - Diarrhoea [None]
  - Nausea [None]
  - Constipation [None]
  - Orthostatic hypertension [None]
  - Hypertransaminasaemia [None]
  - Dehydration [None]
  - Vomiting [None]
  - Loss of consciousness [None]
  - Heart rate increased [None]
  - Photopsia [None]
  - Dyspnoea [None]
  - Enteritis [None]
  - Colitis [None]

NARRATIVE: CASE EVENT DATE: 20240530
